FAERS Safety Report 9784025 (Version 1)
Quarter: 2013Q4

REPORT INFORMATION
  Report Type: Report from Study
  Country: CA (occurrence: CA)
  Receive Date: 20131226
  Receipt Date: 20131226
  Transmission Date: 20140711
  Serious: Yes (Hospitalization)
  Sender: FDA-Public Use
  Company Number: CA-JNJFOC-20131208833

PATIENT
  Age: 39 Year
  Sex: Female
  Weight: 56.25 kg

DRUGS (4)
  1. REMICADE [Suspect]
     Indication: CROHN^S DISEASE
     Dosage: INDUCTION PHASE
     Route: 042
     Dates: start: 20131126
  2. AZATHIOPRINE [Concomitant]
     Route: 065
  3. PREDNISONE [Concomitant]
     Route: 065
  4. PREDNISOLONE [Concomitant]
     Indication: EYE DISORDER
     Dosage: 1% TO RIGHT EYE AS DIRECTED
     Route: 047

REACTIONS (1)
  - Pancreatitis [Recovered/Resolved]
